FAERS Safety Report 16093750 (Version 1)
Quarter: 2019Q1

REPORT INFORMATION
  Report Type: Spontaneous
  Country: DK (occurrence: DK)
  Receive Date: 20190320
  Receipt Date: 20190320
  Transmission Date: 20190418
  Serious: Yes (Death)
  Sender: FDA-Public Use
  Company Number: DK-ACCORD-114138

PATIENT
  Age: 54 Year
  Sex: Female

DRUGS (5)
  1. MORPHINE [Concomitant]
     Active Substance: MORPHINE
     Indication: PAIN
     Dosage: DOSE: 10 MG. STRENGTH: UNKNOWN
  2. CIFIN [Suspect]
     Active Substance: CIPROFLOXACIN HYDROCHLORIDE
     Indication: NAUSEA
     Dosage: DOSE: UNKNOWN. STRENGTH: UNKNOWN.
     Route: 048
     Dates: start: 20180902
  3. METOCLOPRAMIDE. [Suspect]
     Active Substance: METOCLOPRAMIDE
     Indication: PRODUCT USED FOR UNKNOWN INDICATION
     Dosage: DOSE: UNKNOWN. STRENGTH: UNKNOWN
  4. MALFIN [Concomitant]
     Active Substance: MORPHINE SULFATE
     Indication: PAIN
     Dosage: STRENGTH: 10 MG.
     Route: 048
  5. ONDANSETRON [Suspect]
     Active Substance: ONDANSETRON
     Indication: PRODUCT USED FOR UNKNOWN INDICATION
     Dosage: DOSE: UNKNOWN. STRENGTH: UNKNOWN

REACTIONS (2)
  - Gastric haemorrhage [Fatal]
  - Electrocardiogram QT prolonged [Fatal]

NARRATIVE: CASE EVENT DATE: 20180903
